FAERS Safety Report 14129023 (Version 2)
Quarter: 2017Q4

REPORT INFORMATION
  Report Type: Spontaneous
  Country: IL (occurrence: IL)
  Receive Date: 20171026
  Receipt Date: 20171201
  Transmission Date: 20180321
  Serious: Yes (Other)
  Sender: FDA-Public Use
  Company Number: IL-NOVOPROD-564391

PATIENT
  Sex: Male

DRUGS (2)
  1. SAXENDA [Suspect]
     Active Substance: LIRAGLUTIDE
     Dosage: 1.8 MG, QD
     Route: 065
  2. SAXENDA [Suspect]
     Active Substance: LIRAGLUTIDE
     Indication: PRODUCT USED FOR UNKNOWN INDICATION
     Dosage: 1.2 MG, QD
     Route: 065

REACTIONS (9)
  - Weight increased [Unknown]
  - Lymphadenopathy [Not Recovered/Not Resolved]
  - Increased appetite [Unknown]
  - Rectal haemorrhage [Unknown]
  - Fatigue [Unknown]
  - Injection site erythema [Unknown]
  - Device malfunction [Unknown]
  - Dyspepsia [Unknown]
  - Injection site pain [Unknown]
